FAERS Safety Report 4293814-2 (Version None)
Quarter: 2004Q1

REPORT INFORMATION
  Report Type: 
  Country: None (occurrence: None)
  Receive Date: 20040210
  Receipt Date: 20040129
  Transmission Date: 20041129
  Serious: Yes (Other)
  Sender: FDA-Public Use
  Company Number: 2003029435

PATIENT
  Age: 43 Year
  Sex: Female

DRUGS (6)
  1. PHENYTOIN SODIUM [Suspect]
     Indication: CONVULSION
     Dosage: 300 MG DAILY, ORAL
     Route: 048
     Dates: start: 20030514
  2. SERTRALINE HCL [Concomitant]
  3. LANSOPRAZOLE [Concomitant]
  4. DOMPERIDONE MALEATE (DOMPERIDONE MALEATE) [Concomitant]
  5. BECLOMETASONE DIPROPIONATE (BECLOMETASONE DIPROPIONATE) [Concomitant]
  6. CYANOCOBALAMIN (CYANOCOBALAMIN) [Concomitant]

REACTIONS (7)
  - BLISTER [None]
  - BURN INFECTION [None]
  - CHILLS [None]
  - DEHYDRATION [None]
  - MUSCLE CRAMP [None]
  - SUNBURN [None]
  - VOMITING [None]
